FAERS Safety Report 6754989-6 (Version None)
Quarter: 2010Q2

REPORT INFORMATION
  Report Type: 
  Country: None (occurrence: None)
  Receive Date: 20100602
  Receipt Date: 20100524
  Transmission Date: 20101027
  Serious: Yes (Hospitalization, Other)
  Sender: FDA-Public Use
  Company Number: 2010SP028758

PATIENT
  Age: 62 Year
  Sex: Male

DRUGS (11)
  1. DEXAMETHASONE [Suspect]
     Indication: MULTIPLE MYELOMA
     Dosage: 160 MG; PO;
     Route: 048
     Dates: start: 20100105, end: 20100226
  2. VELCADE [Suspect]
     Dosage: 2.5 MG; IV,   1.3 MG; IV
     Route: 042
     Dates: start: 20100329, end: 20100329
  3. VELCADE [Suspect]
     Dosage: 2.5 MG; IV,   1.3 MG; IV
     Route: 042
     Dates: start: 20100105
  4. ACYCLOVIR [Concomitant]
  5. FENTANYL [Concomitant]
  6. FLUCONAZOLE [Concomitant]
  7. FUROSEMIDE [Concomitant]
  8. GLIMEPIRIDE [Concomitant]
  9. LANSOPRAZOLE [Concomitant]
  10. METFORMIN HCL [Concomitant]
  11. PIGLITAZONE [Concomitant]

REACTIONS (6)
  - DIARRHOEA [None]
  - ELECTROLYTE IMBALANCE [None]
  - FATIGUE [None]
  - LOWER RESPIRATORY TRACT INFECTION [None]
  - NAUSEA [None]
  - PULMONARY EMBOLISM [None]
